FAERS Safety Report 10562232 (Version 1)
Quarter: 2014Q4

REPORT INFORMATION
  Report Type: Spontaneous
  Country: US (occurrence: None)
  Receive Date: 20141031
  Receipt Date: 20141031
  Transmission Date: 20150529
  Serious: Yes (Other)
  Sender: FDA-Public Use
  Company Number: VAL_03495_2014

PATIENT
  Age: 31 Year
  Sex: Female

DRUGS (2)
  1. PHENOBARBITAL. [Suspect]
     Active Substance: PHENOBARBITAL
     Indication: SEIZURE
     Dosage: (DF)
  2. CARBAMAZEPINE. [Suspect]
     Active Substance: CARBAMAZEPINE
     Indication: SEIZURE
     Dosage: (DF)

REACTIONS (10)
  - Gamma-glutamyltransferase increased [None]
  - Cholelithiasis [None]
  - Pruritus [None]
  - Blood alkaline phosphatase increased [None]
  - Aspartate aminotransferase increased [None]
  - Liver function test abnormal [None]
  - Fatigue [None]
  - Alanine aminotransferase increased [None]
  - Vanishing bile duct syndrome [None]
  - Hepatic fibrosis [None]
